FAERS Safety Report 9276282 (Version 1)
Quarter: 2013Q2

REPORT INFORMATION
  Report Type: Report from Study
  Country: BR (occurrence: BR)
  Receive Date: 20130507
  Receipt Date: 20130507
  Transmission Date: 20140414
  Serious: Yes (Other)
  Sender: FDA-Public Use
  Company Number: PHHY2013BR044616

PATIENT
  Sex: Male

DRUGS (1)
  1. SANDIMMUN NEORAL / OL [Suspect]
     Dosage: 2 DF

REACTIONS (3)
  - Atopy [Unknown]
  - Infection [Unknown]
  - Immunodeficiency [Unknown]
